FAERS Safety Report 5254735-1 (Version None)
Quarter: 2007Q1

REPORT INFORMATION
  Report Type: 
  Country: None (occurrence: None)
  Receive Date: 20070228
  Receipt Date: 20070212
  Transmission Date: 20070707
  Serious: Yes (Hospitalization)
  Sender: FDA-Public Use
  Company Number: 2007US000322

PATIENT
  Age: 79 Year
  Sex: Female

DRUGS (18)
  1. AMEVIVE [Suspect]
     Indication: PSORIASIS
  2. VANCOMYCIN [Concomitant]
  3. PROTONIX [Concomitant]
  4. LASIX [Concomitant]
  5. SYNTHROID [Concomitant]
  6. COZAAR [Concomitant]
  7. OXYCONTIN [Concomitant]
  8. VICODIN [Concomitant]
  9. AMBIEN [Concomitant]
  10. LEXAPRO [Concomitant]
  11. WELLBUTRIN [Concomitant]
  12. ATENOLOL [Concomitant]
  13. NAMENDA [Concomitant]
  14. ARICEPT (DONEPEXIL HYDROCHLORIDE) [Concomitant]
  15. ATIVAN [Concomitant]
  16. CYMBALTA [Concomitant]
  17. ROCEPHIN [Concomitant]
  18. LEVAQUIN [Concomitant]

REACTIONS (15)
  - ARTHRITIS INFECTIVE [None]
  - ATRIAL FIBRILLATION [None]
  - BLOOD POTASSIUM DECREASED [None]
  - CARDIAC FAILURE CONGESTIVE [None]
  - COMPLICATION OF DEVICE INSERTION [None]
  - CONDITION AGGRAVATED [None]
  - CULTURE POSITIVE [None]
  - ENTEROBACTER INFECTION [None]
  - FISTULA [None]
  - INCISION SITE COMPLICATION [None]
  - POST PROCEDURAL INFECTION [None]
  - POSTOPERATIVE WOUND COMPLICATION [None]
  - PROCEDURAL HYPOTENSION [None]
  - STAPHYLOCOCCAL INFECTION [None]
  - WOUND DRAINAGE [None]
